FAERS Safety Report 10152669 (Version 1)
Quarter: 2014Q2

REPORT INFORMATION
  Report Type: Spontaneous
  Country: US (occurrence: US)
  Receive Date: 20140505
  Receipt Date: 20140505
  Transmission Date: 20141212
  Serious: Yes (Other)
  Sender: FDA-Public Use
  Company Number: US-BAYER-2014-061955

PATIENT
  Age: 28 Year
  Sex: Female

DRUGS (7)
  1. MIRENA [Suspect]
     Dosage: 20 MCG/24HR, CONT
     Route: 015
     Dates: start: 200505, end: 20090911
  2. NEXIUM [Concomitant]
  3. GLIPIZIDE [Concomitant]
  4. METFORMIN [Concomitant]
  5. ASPIRIN [Concomitant]
  6. WELLBUTRIN [Concomitant]
  7. LISINOPRIL [Concomitant]

REACTIONS (5)
  - Device difficult to use [None]
  - Device expulsion [None]
  - Amenorrhoea [None]
  - Pelvic pain [None]
  - Menometrorrhagia [None]
